FAERS Safety Report 21174336 (Version 1)
Quarter: 2022Q3

REPORT INFORMATION
  Report Type: Spontaneous
  Country: CA (occurrence: CA)
  Receive Date: 20220804
  Receipt Date: 20220804
  Transmission Date: 20221027
  Serious: Yes (Death, Life-Threatening, Congenital Anomaly, Other)
  Sender: FDA-Public Use
  Company Number: CA-BoehringerIngelheim-2022-BI-165112

PATIENT
  Age: 2 Day
  Weight: 1 kg

DRUGS (1)
  1. TELMISARTAN [Suspect]
     Active Substance: TELMISARTAN
     Indication: Hypertension
     Route: 064

REACTIONS (10)
  - Anuria [Fatal]
  - Renal vein thrombosis [Fatal]
  - Low birth weight baby [Fatal]
  - Apgar score low [Fatal]
  - Foetal exposure during pregnancy [Fatal]
  - Premature baby [Fatal]
  - Hypocalvaria [Fatal]
  - Respiratory failure [Unknown]
  - Renal tubular dysfunction [Unknown]
  - Hypotension [Unknown]
